FAERS Safety Report 7208623-1 (Version None)
Quarter: 2011Q1

REPORT INFORMATION
  Report Type: 
  Country: None (occurrence: None)
  Receive Date: 20110104
  Receipt Date: 20101228
  Transmission Date: 20110831
  Serious: Yes (Hospitalization)
  Sender: FDA-Public Use
  Company Number: JP-ROCHE-747468

PATIENT
  Sex: Female
  Weight: 54.5 kg

DRUGS (21)
  1. BASEN [Concomitant]
     Route: 048
  2. EVISTA [Concomitant]
     Route: 048
  3. BLOPRESS [Concomitant]
     Route: 048
  4. PURSENNID [Concomitant]
     Route: 048
     Dates: end: 20101103
  5. NORVASC [Concomitant]
     Route: 048
  6. TOCILIZUMAB [Suspect]
     Indication: RHEUMATOID ARTHRITIS
     Dosage: DISCONTINUED.
     Route: 042
     Dates: start: 20100804, end: 20101027
  7. AMARYL [Concomitant]
     Route: 048
  8. MELBIN [Concomitant]
     Route: 048
  9. PLACEBO [Suspect]
     Indication: RHEUMATOID ARTHRITIS
     Dosage: DISCONTINUED.
     Route: 058
     Dates: start: 20100804, end: 20101027
  10. KETOPROFEN [Concomitant]
     Route: 061
  11. KETOPROFEN [Concomitant]
     Route: 061
  12. MAGNESIUM [Concomitant]
     Route: 048
     Dates: start: 20101013, end: 20101115
  13. PREDNISOLONE [Suspect]
     Indication: RHEUMATOID ARTHRITIS
     Dosage: GIVEN AS 1X 5MG AND 1X 2 MG TABLETS
     Route: 048
  14. GASTER D [Concomitant]
     Route: 048
  15. LIPITOR [Concomitant]
     Route: 048
  16. ASPIRIN [Concomitant]
     Route: 048
  17. VOLTAREN [Concomitant]
     Route: 048
  18. TRIAZOLAM [Concomitant]
     Dosage: REPORTED AS MINZAIN.
     Route: 048
     Dates: end: 20101115
  19. MAGLAX [Concomitant]
     Route: 048
  20. LENDORMIN [Concomitant]
     Route: 048
  21. SENNA EXTRACT [Concomitant]
     Dosage: DRUG: YODEL-S(SENNA EXTRACT)
     Route: 048
     Dates: start: 20101104

REACTIONS (2)
  - LUMBAR VERTEBRAL FRACTURE [None]
  - SPINAL COLUMN STENOSIS [None]
